FAERS Safety Report 6480426-5 (Version None)
Quarter: 2009Q4

REPORT INFORMATION
  Report Type: 
  Country: None (occurrence: None)
  Receive Date: 20091123
  Receipt Date: 20090804
  Transmission Date: 20100525
  Serious: No
  Sender: FDA-Public Use
  Company Number: 8049974

PATIENT
  Age: 55 Year
  Sex: Female
  Weight: 79.5 kg

DRUGS (15)
  1. CIMZIA [Suspect]
     Indication: CROHN'S DISEASE
     Dosage: 400 MG SC
     Route: 058
     Dates: start: 20090720
  2. CIMZIA [Suspect]
     Indication: RHEUMATOID ARTHRITIS
     Dosage: 400 MG SC
     Route: 058
     Dates: start: 20090720
  3. PENTASA [Concomitant]
  4. ARTIFICIAL TEARS [Concomitant]
  5. HYDROCORTISONE CREAM [Concomitant]
  6. HYOSCYAMINE [Concomitant]
  7. BENADRYL [Concomitant]
  8. OXYCODONE [Concomitant]
  9. TYLENOL (CAPLET) [Concomitant]
  10. VITAMIN B-12 [Concomitant]
  11. FLONASE [Concomitant]
  12. FISH OIL [Concomitant]
  13. FOLIC ACID [Concomitant]
  14. CALCIUM [Concomitant]
  15. INDERAL [Concomitant]

REACTIONS (1)
  - DIARRHOEA [None]
